FAERS Safety Report 24951243 (Version 1)
Quarter: 2025Q1

REPORT INFORMATION
  Report Type: Spontaneous
  Country: US (occurrence: US)
  Receive Date: 20250210
  Receipt Date: 20250210
  Transmission Date: 20250408
  Serious: No
  Sender: IOVANCE BIOTHERAPEUTICS
  Company Number: US-IOVANCE BIOTHERAPEUTICS, INC-2024IOV000110

PATIENT

DRUGS (1)
  1. AMTAGVI [Suspect]
     Active Substance: LIFILEUCEL
     Indication: Metastatic malignant melanoma
     Route: 042
     Dates: start: 20241114, end: 20241114

REACTIONS (1)
  - Product container issue [Unknown]

NARRATIVE: CASE EVENT DATE: 20241114
